FAERS Safety Report 4689187-3 (Version None)
Quarter: 2005Q2

REPORT INFORMATION
  Report Type: 
  Country: None (occurrence: None)
  Receive Date: 20050613
  Receipt Date: 20050602
  Transmission Date: 20051028
  Serious: Yes (Hospitalization, Disabling, Other)
  Sender: FDA-Public Use
  Company Number: FI-BRISTOL-MYERS SQUIBB COMPANY-12991469

PATIENT
  Age: 16 Year
  Sex: Female

DRUGS (4)
  1. ABILIFY [Suspect]
     Indication: CONVERSION DISORDER
     Route: 048
     Dates: start: 20050517, end: 20050525
  2. LEVOMEPROMAZINE [Concomitant]
     Dosage: 100 MG X 1 TITRATED DOWN TO 50 MG X 1.
  3. RIVATRIL [Concomitant]
     Dosage: 0.5 MG X 2 TITRATED DOWN TO 0.5 MG X 1 AND LATER DISCONTINUED (DATE NOT REPORTED).
  4. DIAZEPAM [Concomitant]
     Dosage: 10 MG 1 X 1 FOR THE NIGHT.

REACTIONS (2)
  - NEUROLEPTIC MALIGNANT SYNDROME [None]
  - URINARY TRACT INFECTION [None]
